FAERS Safety Report 9953324 (Version 1)
Quarter: 2014Q1

REPORT INFORMATION
  Report Type: Report from Study
  Country: US (occurrence: US)
  Receive Date: 20140304
  Receipt Date: 20140304
  Transmission Date: 20141002
  Serious: No
  Sender: FDA-Public Use
  Company Number: US-ABBVIE-13P-163-1071352-00

PATIENT
  Age: 54 Year
  Sex: Female

DRUGS (4)
  1. HUMIRA [Suspect]
     Indication: RHEUMATOID ARTHRITIS
     Dates: start: 20121017, end: 20130320
  2. THYROID REPLACEMENT [Concomitant]
     Indication: THYROID DISORDER
  3. BLOOD PRESSURE MEDICATION [Concomitant]
     Indication: BLOOD PRESSURE
  4. PAIN MEDICATION [Concomitant]
     Indication: PAIN

REACTIONS (1)
  - Back pain [Not Recovered/Not Resolved]
